FAERS Safety Report 7197539-5 (Version None)
Quarter: 2010Q4

REPORT INFORMATION
  Report Type: 
  Country: None (occurrence: None)
  Receive Date: 20101227
  Receipt Date: 20091222
  Transmission Date: 20110411
  Serious: Yes (Death)
  Sender: FDA-Public Use
  Company Number: JP-SANOFI-AVENTIS-2009SA010838

PATIENT
  Age: 74 Year
  Sex: Male

DRUGS (16)
  1. TAXOTERE [Suspect]
     Route: 041
  2. TAXOTERE [Suspect]
     Indication: METASTASES TO BONE
     Route: 041
  3. TAXOTERE [Suspect]
     Indication: METASTASES TO LUNG
     Route: 041
  4. DOXORUBICIN HCL [Concomitant]
  5. DOXORUBICIN HCL [Concomitant]
     Indication: METASTASES TO BONE
  6. DOXORUBICIN HCL [Concomitant]
     Indication: METASTASES TO LUNG
  7. MITOMYCIN [Concomitant]
  8. MITOMYCIN [Concomitant]
     Indication: METASTASES TO BONE
  9. MITOMYCIN [Concomitant]
     Indication: METASTASES TO LUNG
  10. FLUOROURACIL [Concomitant]
  11. FLUOROURACIL [Concomitant]
     Indication: METASTASES TO BONE
  12. FLUOROURACIL [Concomitant]
     Indication: METASTASES TO LUNG
  13. CISPLATIN [Concomitant]
  14. CISPLATIN [Concomitant]
     Indication: METASTASES TO BONE
  15. CISPLATIN [Concomitant]
     Indication: METASTASES TO LUNG
  16. ESTRAMUSTINE PHOSPHATE SODIUM [Concomitant]

REACTIONS (1)
  - ACUTE MYELOID LEUKAEMIA [None]
